FAERS Safety Report 8811493 (Version 1)
Quarter: 2012Q4

REPORT INFORMATION
  Report Type: Spontaneous
  Country: US (occurrence: None)
  Receive Date: 20120925
  Receipt Date: 20120925
  Transmission Date: 20130627
  Serious: Yes (Hospitalization)
  Sender: FDA-Public Use
  Company Number: None

PATIENT
  Age: 79 Year
  Sex: Male
  Weight: 60.6 kg

DRUGS (2)
  1. ERTAPENEM [Suspect]
     Indication: BLOOD CULTURE POSITIVE
     Route: 042
     Dates: start: 20120821, end: 20120906
  2. ERTAPENEM [Suspect]
     Indication: PARONYCHIA
     Route: 042
     Dates: start: 20120821, end: 20120906

REACTIONS (9)
  - Confusional state [None]
  - Myoclonus [None]
  - Muscle twitching [None]
  - Hallucinations, mixed [None]
  - Asthenia [None]
  - Nightmare [None]
  - Agitation [None]
  - Sedation [None]
  - Ataxia [None]
